FAERS Safety Report 19896030 (Version 19)
Quarter: 2022Q2

REPORT INFORMATION
  Report Type: Report from Study
  Country: CN (occurrence: None)
  Receive Date: 20210929
  Receipt Date: 20220610
  Transmission Date: 20220721
  Serious: Yes (Hospitalization)
  Sender: FDA-Public Use
  Company Number: CN-ROCHE-2921390

PATIENT
  Age: 61 Year
  Sex: Male
  Weight: 41.5 kg

DRUGS (55)
  1. TIRAGOLUMAB [Suspect]
     Active Substance: TIRAGOLUMAB
     Indication: Oesophageal squamous cell carcinoma
     Dosage: ON 10/SEP/2021, THE PATIENT RECEIVED THE MOST RECENT DOSE OF STUDY DRUG PRIOR TO AE/SAE
     Route: 042
     Dates: start: 20210910
  2. TIRAGOLUMAB [Suspect]
     Active Substance: TIRAGOLUMAB
     Indication: Oesophageal squamous cell carcinoma metastatic
  3. ATEZOLIZUMAB [Suspect]
     Active Substance: ATEZOLIZUMAB
     Indication: Oesophageal squamous cell carcinoma
     Dosage: ON 10/SEP/2021, THE PATIENT RECEIVED THE MOST RECENT DOSE OF STUDY DRUG PRIOR TO AE/SAE
     Route: 041
     Dates: start: 20210910
  4. ATEZOLIZUMAB [Suspect]
     Active Substance: ATEZOLIZUMAB
     Indication: Oesophageal squamous cell carcinoma metastatic
  5. PACLITAXEL [Suspect]
     Active Substance: PACLITAXEL
     Indication: Oesophageal squamous cell carcinoma
     Dosage: ON 10/SEP/2021, THE PATIENT RECEIVED THE MOST RECENT DOSE OF STUDY DRUG (90 MG) PRIOR TO AE/SAE
     Route: 042
     Dates: start: 20210910
  6. PACLITAXEL [Suspect]
     Active Substance: PACLITAXEL
     Indication: Oesophageal squamous cell carcinoma metastatic
  7. CISPLATIN [Suspect]
     Active Substance: CISPLATIN
     Indication: Oesophageal squamous cell carcinoma
     Dosage: ON 10/SEP/2021, THE PATIENT RECEIVED THE MOST RECENT DOSE OF STUDY DRUG (240 MG) PRIOR TO AE/SAE
     Route: 042
     Dates: start: 20210910
  8. CISPLATIN [Suspect]
     Active Substance: CISPLATIN
     Indication: Oesophageal squamous cell carcinoma metastatic
  9. SODIUM CHLORIDE [Concomitant]
     Active Substance: SODIUM CHLORIDE
     Route: 050
     Dates: start: 20210914, end: 20210914
  10. SODIUM CHLORIDE [Concomitant]
     Active Substance: SODIUM CHLORIDE
     Route: 050
     Dates: start: 20210909, end: 20210909
  11. SODIUM CHLORIDE [Concomitant]
     Active Substance: SODIUM CHLORIDE
     Route: 050
     Dates: start: 20210910, end: 20210910
  12. SODIUM CHLORIDE [Concomitant]
     Active Substance: SODIUM CHLORIDE
     Route: 050
     Dates: start: 20210929, end: 20210929
  13. SODIUM CHLORIDE [Concomitant]
     Active Substance: SODIUM CHLORIDE
     Route: 050
     Dates: start: 20210928, end: 20210928
  14. SODIUM CHLORIDE [Concomitant]
     Active Substance: SODIUM CHLORIDE
     Route: 050
     Dates: start: 20210926, end: 20210926
  15. SODIUM CHLORIDE [Concomitant]
     Active Substance: SODIUM CHLORIDE
     Route: 050
     Dates: start: 20210923, end: 20210923
  16. SODIUM CHLORIDE [Concomitant]
     Active Substance: SODIUM CHLORIDE
     Route: 050
     Dates: start: 20210919, end: 20210919
  17. SODIUM CHLORIDE [Concomitant]
     Active Substance: SODIUM CHLORIDE
     Route: 050
     Dates: start: 20210921, end: 20210921
  18. SODIUM CHLORIDE [Concomitant]
     Active Substance: SODIUM CHLORIDE
     Route: 050
     Dates: start: 20210919, end: 20210919
  19. SODIUM CHLORIDE [Concomitant]
     Active Substance: SODIUM CHLORIDE
     Route: 050
     Dates: start: 20210918, end: 20210918
  20. SODIUM CHLORIDE [Concomitant]
     Active Substance: SODIUM CHLORIDE
     Route: 050
     Dates: start: 20210915, end: 20210915
  21. SODIUM CHLORIDE [Concomitant]
     Active Substance: SODIUM CHLORIDE
     Route: 050
     Dates: start: 20210913, end: 20210913
  22. SODIUM CHLORIDE [Concomitant]
     Active Substance: SODIUM CHLORIDE
     Route: 050
     Dates: start: 20210909, end: 20210912
  23. FUROSEMIDE [Concomitant]
     Active Substance: FUROSEMIDE
     Route: 042
     Dates: start: 20210909, end: 20210911
  24. FUROSEMIDE [Concomitant]
     Active Substance: FUROSEMIDE
     Route: 042
     Dates: start: 20210918, end: 20210918
  25. PROMETHAZINE [Concomitant]
     Active Substance: PROMETHAZINE HYDROCHLORIDE
     Route: 030
     Dates: start: 20210910, end: 20210910
  26. CIMETIDINE [Concomitant]
     Active Substance: CIMETIDINE
     Route: 050
     Dates: start: 20210910, end: 20210910
  27. OMEPRAZOLE SODIUM [Concomitant]
     Active Substance: OMEPRAZOLE SODIUM
     Route: 042
     Dates: start: 20210910, end: 20210910
  28. DEXAMETHASONE SODIUM SULFATE [Concomitant]
     Active Substance: DEXAMETHASONE SODIUM SULFATE
     Route: 042
     Dates: start: 20210910, end: 20210910
  29. ONDANSETRON HYDROCHLORIDE [Concomitant]
     Active Substance: ONDANSETRON HYDROCHLORIDE
     Indication: Vomiting
     Route: 042
     Dates: start: 20210910, end: 20210910
  30. SODIUM CHLORIDE [Concomitant]
     Active Substance: SODIUM CHLORIDE
     Dosage: CORRECT ELECTROLYTE
     Route: 050
     Dates: start: 20210913, end: 20210914
  31. SODIUM CHLORIDE [Concomitant]
     Active Substance: SODIUM CHLORIDE
     Dosage: CORRECT ELECTROLYTE
     Route: 050
     Dates: start: 20210915, end: 20210917
  32. SODIUM CHLORIDE [Concomitant]
     Active Substance: SODIUM CHLORIDE
     Dosage: CORRECT ELECTROLYTE
     Route: 050
     Dates: start: 20210918, end: 20210918
  33. SODIUM CHLORIDE [Concomitant]
     Active Substance: SODIUM CHLORIDE
     Dosage: CORRECT ELECTROLYTE
     Route: 050
     Dates: start: 20210919, end: 20210919
  34. SODIUM CHLORIDE [Concomitant]
     Active Substance: SODIUM CHLORIDE
     Dosage: CORRECT ELECTROLYTE
     Route: 050
     Dates: start: 20210921, end: 20210921
  35. SODIUM CHLORIDE [Concomitant]
     Active Substance: SODIUM CHLORIDE
     Dosage: CORRECT ELECTROLYTE
     Route: 050
     Dates: start: 20210923, end: 20210923
  36. SODIUM CHLORIDE [Concomitant]
     Active Substance: SODIUM CHLORIDE
     Dosage: CORRECT ELECTROLYTE
     Route: 050
     Dates: start: 20210926, end: 20210926
  37. SODIUM CHLORIDE [Concomitant]
     Active Substance: SODIUM CHLORIDE
     Dosage: CORRECT ELECTROLYTE
     Route: 050
     Dates: start: 20210928, end: 20210928
  38. SODIUM CHLORIDE [Concomitant]
     Active Substance: SODIUM CHLORIDE
     Dosage: CORRECT ELECTROLYTE
     Route: 050
     Dates: start: 20210929, end: 20210929
  39. SODIUM CHLORIDE [Concomitant]
     Active Substance: SODIUM CHLORIDE
     Dosage: CORRECT ELECTROLYTE
     Route: 050
     Dates: start: 20210919, end: 20210919
  40. POTASSIUM CHLORIDE [Concomitant]
     Active Substance: POTASSIUM CHLORIDE
     Route: 048
     Dates: start: 20210916, end: 20210916
  41. POTASSIUM CHLORIDE [Concomitant]
     Active Substance: POTASSIUM CHLORIDE
     Route: 048
     Dates: start: 20210918, end: 20210918
  42. POTASSIUM CHLORIDE [Concomitant]
     Active Substance: POTASSIUM CHLORIDE
     Route: 048
     Dates: start: 20210919, end: 20210919
  43. POTASSIUM CHLORIDE [Concomitant]
     Active Substance: POTASSIUM CHLORIDE
     Route: 048
     Dates: start: 20210920, end: 20210920
  44. POTASSIUM CHLORIDE [Concomitant]
     Active Substance: POTASSIUM CHLORIDE
     Route: 048
     Dates: start: 20210924, end: 20210924
  45. POTASSIUM CHLORIDE [Concomitant]
     Active Substance: POTASSIUM CHLORIDE
     Route: 048
     Dates: start: 20210926, end: 20210926
  46. POTASSIUM CHLORIDE [Concomitant]
     Active Substance: POTASSIUM CHLORIDE
     Route: 048
     Dates: start: 20210927, end: 20210927
  47. POTASSIUM CHLORIDE [Concomitant]
     Active Substance: POTASSIUM CHLORIDE
     Route: 048
     Dates: start: 20211003, end: 20211004
  48. POTASSIUM CHLORIDE [Concomitant]
     Active Substance: POTASSIUM CHLORIDE
     Route: 048
     Dates: start: 20210920, end: 20210921
  49. POTASSIUM CHLORIDE [Concomitant]
     Active Substance: POTASSIUM CHLORIDE
     Route: 048
     Dates: start: 20210916, end: 20210916
  50. POTASSIUM CHLORIDE [Concomitant]
     Active Substance: POTASSIUM CHLORIDE
     Route: 048
     Dates: start: 20210918, end: 20210918
  51. POTASSIUM CHLORIDE [Concomitant]
     Active Substance: POTASSIUM CHLORIDE
     Route: 048
     Dates: start: 20211003, end: 20211003
  52. GLUTATHIONE [Concomitant]
     Active Substance: GLUTATHIONE
     Dosage: HEPATOPROTECTIVE TREATMENT
     Route: 050
     Dates: start: 20210924, end: 20210924
  53. GLUTATHIONE [Concomitant]
     Active Substance: GLUTATHIONE
     Dosage: HEPATOPROTECTIVE TREATMENT
     Route: 050
     Dates: start: 20210925, end: 20210925
  54. ESTAZOLAM [Concomitant]
     Active Substance: ESTAZOLAM
     Dosage: SLEEP AID
     Route: 048
     Dates: start: 20210914, end: 20210919
  55. GLYCYRRHIZA [Concomitant]
     Active Substance: LICORICE
     Indication: Cough
     Dosage: SOLUTION
     Route: 048
     Dates: start: 20210921, end: 20210926

REACTIONS (1)
  - Rash pustular [Recovered/Resolved]

NARRATIVE: CASE EVENT DATE: 20210920
